FAERS Safety Report 17369681 (Version 2)
Quarter: 2020Q1

REPORT INFORMATION
  Report Type: Report from Study
  Country: None (occurrence: CH)
  Receive Date: 20200205
  Receipt Date: 20200211
  Transmission Date: 20200409
  Serious: Yes (Death, Hospitalization)
  Sender: FDA-Public Use
  Company Number: CH-ABBVIE-20K-151-3262356-00

PATIENT
  Sex: Male

DRUGS (3)
  1. DUODOPA [Suspect]
     Active Substance: CARBIDOPA\LEVODOPA
     Dosage: MD 5.5 ML, CR-DAY: 3.2 ML/H, CR-NIGHT: 0 ML/H, ED: 1 ML/H. 1 CASSETTE/DAY?16H THERAPY
     Route: 050
     Dates: start: 20190507, end: 20190529
  2. DUODOPA [Suspect]
     Active Substance: CARBIDOPA\LEVODOPA
     Indication: PARKINSON^S DISEASE
     Dosage: 1 CASSETTE / DAY
     Route: 050
     Dates: start: 20190430, end: 20190507
  3. DUODOPA [Suspect]
     Active Substance: CARBIDOPA\LEVODOPA
     Dosage: MD 5.5 ML, CR-DAY: 3.8 ML/H, CR-NIGHT: 1.8 ML/H, ED: 1 ML/H; 1 CASSETTE/DAY?24H THERAPY
     Route: 050
     Dates: start: 20190529

REACTIONS (2)
  - Laryngeal cancer recurrent [Not Recovered/Not Resolved]
  - Pneumonia [Fatal]
